FAERS Safety Report 15456585 (Version 1)
Quarter: 2018Q4

REPORT INFORMATION
  Report Type: Spontaneous
  Country: IE (occurrence: IE)
  Receive Date: 20181002
  Receipt Date: 20181002
  Transmission Date: 20190204
  Serious: Yes (Death, Hospitalization, Other)
  Sender: FDA-Public Use
  Company Number: IE-GILEAD-2018-0365907

PATIENT
  Age: 50 Year
  Sex: Female

DRUGS (1)
  1. GENVOYA [Suspect]
     Active Substance: COBICISTAT\ELVITEGRAVIR\EMTRICITABINE\TENOFOVIR ALAFENAMIDE FUMARATE
     Indication: HIV TEST POSITIVE
     Dosage: UNK
     Route: 065

REACTIONS (7)
  - General physical health deterioration [Fatal]
  - Vomiting [Fatal]
  - Acute kidney injury [Fatal]
  - Cardiac failure [Fatal]
  - Nausea [Fatal]
  - Diarrhoea [Fatal]
  - Lactic acidosis [Fatal]

NARRATIVE: CASE EVENT DATE: 20180903
